FAERS Safety Report 22093115 (Version 2)
Quarter: 2023Q2

REPORT INFORMATION
  Report Type: Report from Study
  Country: US (occurrence: US)
  Receive Date: 20230314
  Receipt Date: 20230518
  Transmission Date: 20230721
  Serious: Yes (Hospitalization, Other)
  Sender: FDA-Public Use
  Company Number: US-OTSUKA-2023_006045

PATIENT
  Age: 61 Year
  Sex: Male
  Weight: 131.54 kg

DRUGS (4)
  1. DEXTROMETHORPHAN HYDROBROMIDE\QUINIDINE SULFATE [Suspect]
     Active Substance: DEXTROMETHORPHAN HYDROBROMIDE\QUINIDINE SULFATE
     Indication: Affect lability
     Dosage: (20-10MG)
     Route: 065
  2. TRINTELLIX [Concomitant]
     Active Substance: VORTIOXETINE HYDROBROMIDE
     Indication: Product used for unknown indication
     Dosage: 20 MG
     Route: 065
  3. XANAX [Concomitant]
     Active Substance: ALPRAZOLAM
     Indication: Product used for unknown indication
     Dosage: UNK
     Route: 065
  4. LAMICTAL [Concomitant]
     Active Substance: LAMOTRIGINE
     Indication: Product used for unknown indication
     Dosage: 100 MG
     Route: 065

REACTIONS (3)
  - Suicide attempt [Unknown]
  - Gun shot wound [Unknown]
  - Mental disorder [Unknown]

NARRATIVE: CASE EVENT DATE: 20200529
